FAERS Safety Report 20873820 (Version 1)
Quarter: 2022Q2

REPORT INFORMATION
  Report Type: Spontaneous
  Country: CN (occurrence: CN)
  Receive Date: 20220525
  Receipt Date: 20220525
  Transmission Date: 20220721
  Serious: Yes (Other)
  Sender: FDA-Public Use
  Company Number: CN-ELI_LILLY_AND_COMPANY-CN202205006330

PATIENT
  Weight: 65 kg

DRUGS (7)
  1. CIALIS [Suspect]
     Active Substance: TADALAFIL
     Indication: Erectile dysfunction
     Dosage: 5 MG, DAILY
     Route: 048
     Dates: start: 202103
  2. CIALIS [Suspect]
     Active Substance: TADALAFIL
     Dosage: 5 MG, EVERY 2 DAYS
     Route: 048
  3. CIALIS [Suspect]
     Active Substance: TADALAFIL
     Dosage: 5 MG, EVERY 3 DAYS
     Route: 048
  4. CIALIS [Suspect]
     Active Substance: TADALAFIL
     Dosage: 5 MG, EVERY 4 DAYS
     Dates: start: 202110
  5. CIALIS [Suspect]
     Active Substance: TADALAFIL
     Dosage: 5 MG, EVERY 2 DAYS
     Dates: start: 202203
  6. CIALIS [Suspect]
     Active Substance: TADALAFIL
     Dosage: 5 MG, EVERY 3 DAYS
     Route: 048
     Dates: start: 202204
  7. MENEVIT [Concomitant]
     Indication: Product used for unknown indication

REACTIONS (3)
  - Abortion induced [Unknown]
  - Abdominal discomfort [Unknown]
  - Paternal exposure during pregnancy [Unknown]
